FAERS Safety Report 5226722-0 (Version None)
Quarter: 2007Q1

REPORT INFORMATION
  Report Type: 
  Country: None (occurrence: None)
  Receive Date: 20070129
  Receipt Date: 20070119
  Transmission Date: 20070707
  Serious: Yes (Other)
  Sender: FDA-Public Use
  Company Number: CHPA2007US01257

PATIENT
  Age: 52 Year
  Sex: Female
  Weight: 101.1 kg

DRUGS (10)
  1. NICOTINE [Suspect]
     Indication: SMOKING CESSATION THERAPY
     Dosage: 21 MG, QD, TRANSDERMAL
     Route: 062
     Dates: start: 20070117, end: 20070119
  2. DEPAKOTE [Concomitant]
  3. ABILIFY [Concomitant]
  4. WELLBUTRIN XL [Concomitant]
  5. LAMICTAL [Concomitant]
  6. LITHIUM CARBONATE [Concomitant]
  7. INDERAL [Concomitant]
  8. CLONAZEPAM [Concomitant]
  9. PRIMIDONE [Concomitant]
  10. TOPAMAX [Concomitant]

REACTIONS (3)
  - DIZZINESS [None]
  - FEELING ABNORMAL [None]
  - SPEECH DISORDER [None]
